FAERS Safety Report 6768115-0 (Version None)
Quarter: 2010Q2

REPORT INFORMATION
  Report Type: 
  Country: None (occurrence: None)
  Receive Date: 20100610
  Receipt Date: 20100528
  Transmission Date: 20101027
  Serious: Yes (Hospitalization)
  Sender: FDA-Public Use
  Company Number: 1000013288

PATIENT
  Age: 50 Year
  Sex: Female

DRUGS (10)
  1. ACAMPROSATE (ACAMPROSATE CALCIUM) (333 MILLIGRAM, TABLETS) [Suspect]
     Indication: ALCOHOL ABUSE
     Dosage: 3 DOSAGE FORMS (1 DOSAGE FORMS, 3 IN 1 D), ORAL
     Route: 048
     Dates: start: 20090616, end: 20090814
  2. EQUANIL [Suspect]
     Indication: DELIRIUM TREMENS
     Dosage: 3 DOSAGE FORMS (1 DOSAGE FORMS, 3 IN 1 D), ORAL
     Route: 048
     Dates: start: 20090616, end: 20090828
  3. ALDACTONE [Suspect]
     Indication: OEDEMA
     Dosage: 1 DOSAGE FORMS (1 DOSAGE FORMS, 1 IN 1 D), ORAL
     Route: 048
     Dates: start: 20090619, end: 20090828
  4. VITAMIN B1 TAB [Suspect]
     Indication: VITAMIN B1 DEFICIENCY
     Dosage: 4 DOSAGE FORMS (2 DOSAGE FORMS, 2 IN 1 D), ORAL
     Route: 048
     Dates: start: 20090608, end: 20090821
  5. VITAMIN B6 [Suspect]
     Indication: VITAMIN B6 DEFICIENCY
     Dosage: 4  DOSAGE FORMS (2 DOSAGE FORMS, 2 IN 1 D), ORAL
     Route: 048
     Dates: start: 20090608, end: 20090821
  6. TORENTAL [Concomitant]
  7. SOLUPRED [Concomitant]
  8. AMOXICILLIN [Concomitant]
  9. LASIX [Concomitant]
  10. QUESTRAN [Concomitant]

REACTIONS (22)
  - ALANINE AMINOTRANSFERASE INCREASED [None]
  - ASCITES [None]
  - ASPARTATE AMINOTRANSFERASE INCREASED [None]
  - BLOOD BILIRUBIN INCREASED [None]
  - CHOLELITHIASIS [None]
  - ECZEMA [None]
  - EOSINOPHILIA [None]
  - ERYTHEMA [None]
  - GAMMA-GLUTAMYLTRANSFERASE INCREASED [None]
  - HEPATOMEGALY [None]
  - MEAN CELL VOLUME INCREASED [None]
  - NECROSIS [None]
  - OEDEMA PERIPHERAL [None]
  - PROTHROMBIN TIME PROLONGED [None]
  - PRURIGO [None]
  - PRURITUS [None]
  - SKIN EXFOLIATION [None]
  - SKIN OEDEMA [None]
  - THROMBOCYTOPENIA [None]
  - URTICARIA [None]
  - WEIGHT DECREASED [None]
  - WEIGHT INCREASED [None]
